FAERS Safety Report 6772256-1 (Version None)
Quarter: 2010Q2

REPORT INFORMATION
  Report Type: 
  Country: None (occurrence: None)
  Receive Date: 20100616
  Receipt Date: 20090624
  Transmission Date: 20101027
  Serious: No
  Sender: FDA-Public Use
  Company Number: US-ASTRAZENECA-2009UW11641

PATIENT
  Age: 85 Year
  Sex: Male
  Weight: 99.8 kg

DRUGS (35)
  1. PULMICORT RESPULES [Suspect]
     Indication: COUGH
     Route: 055
     Dates: start: 20090401
  2. PULMICORT RESPULES [Suspect]
     Indication: BRONCHITIS
     Route: 055
     Dates: start: 20090401
  3. COZAAR [Concomitant]
  4. ALLOPURINOL [Concomitant]
  5. POTASSIUM [Concomitant]
  6. TEMAZEPAM [Concomitant]
  7. PRILOSEC [Concomitant]
  8. CARDURA [Concomitant]
  9. FOLIC ACID [Concomitant]
  10. MULTI-VITAMINS [Concomitant]
  11. ZINC [Concomitant]
  12. LECITHIN [Concomitant]
  13. LOVAZA [Concomitant]
  14. OMEGA 6 [Concomitant]
  15. OMEGA 9 [Concomitant]
  16. PUMPKIN SEED OIL [Concomitant]
  17. APPLE PECTIN [Concomitant]
  18. CINNAMON [Concomitant]
  19. POMAGRANTE [Concomitant]
  20. NEURONTIN [Concomitant]
  21. VITAMIN E [Concomitant]
  22. LYSINE [Concomitant]
  23. VITAMIN B-12 [Concomitant]
  24. VITAMIN B6 [Concomitant]
  25. VITAMIN B COMPLEX CAP [Concomitant]
  26. MAGNESIUM [Concomitant]
  27. SAW PALMETTO [Concomitant]
  28. VITAMIN C [Concomitant]
  29. ASPIRIN [Concomitant]
  30. ALURONIC ACID [Concomitant]
  31. PREDNISONE [Concomitant]
  32. KLOR-CON [Concomitant]
  33. FUROSEMIDE [Concomitant]
  34. IPRATROPIUM BROMIDE [Concomitant]
  35. ALBUTEROL SULFATE [Concomitant]

REACTIONS (1)
  - ORAL DISORDER [None]
